FAERS Safety Report 6292094-6 (Version None)
Quarter: 2009Q3

REPORT INFORMATION
  Report Type: 
  Country: None (occurrence: None)
  Receive Date: 20090731
  Receipt Date: 20080124
  Transmission Date: 20100115
  Serious: Yes (Hospitalization, Other)
  Sender: FDA-Public Use
  Company Number: US-ASTRAZENECA-2006UW08456

PATIENT
  Age: 22300 Day
  Sex: Male

DRUGS (14)
  1. SEROQUEL [Suspect]
     Indication: DEPRESSION
     Route: 048
     Dates: start: 20040201, end: 20050114
  2. SEROQUEL [Suspect]
     Indication: ANXIETY
     Route: 048
     Dates: start: 20040201, end: 20050114
  3. SEROQUEL [Suspect]
     Route: 048
     Dates: start: 20040527
  4. SEROQUEL [Suspect]
     Route: 048
     Dates: start: 20040527
  5. PLAVIX [Concomitant]
     Route: 048
     Dates: start: 20040616
  6. VASOTEC [Concomitant]
     Indication: HYPERTENSION
     Route: 048
     Dates: start: 19970107
  7. TRENTAL [Concomitant]
     Indication: PERIPHERAL VASCULAR DISORDER
     Route: 048
     Dates: start: 20010904
  8. NEXIUM [Concomitant]
     Indication: GASTROOESOPHAGEAL REFLUX DISEASE
     Route: 048
     Dates: start: 20020107
  9. NEXIUM [Concomitant]
     Indication: DYSPEPSIA
     Route: 048
     Dates: start: 20020107
  10. NEURONTIN [Concomitant]
     Indication: DIABETIC NEUROPATHY
     Dosage: 600 MG - 650 MG DAILY
     Route: 048
     Dates: start: 20010531
  11. LEXAPRO [Concomitant]
     Indication: ANXIETY
     Route: 048
     Dates: start: 20040527
  12. LEXAPRO [Concomitant]
     Indication: DEPRESSION
     Route: 048
     Dates: start: 20040527
  13. AMBIEN [Concomitant]
     Route: 048
     Dates: start: 20040616
  14. LISINOPRIL [Concomitant]
     Dates: start: 20040616

REACTIONS (2)
  - DIABETIC COMA [None]
  - DIABETIC NEUROPATHY [None]
